FAERS Safety Report 12904543 (Version 1)
Quarter: 2016Q4

REPORT INFORMATION
  Report Type: Spontaneous
  Country: US (occurrence: US)
  Receive Date: 20161102
  Receipt Date: 20161102
  Transmission Date: 20170207
  Serious: Yes (Other)
  Sender: FDA-Public Use
  Company Number: US-BAYER-2016-205641

PATIENT

DRUGS (3)
  1. CIPRO [Suspect]
     Active Substance: CIPROFLOXACIN HYDROCHLORIDE
     Indication: INFLUENZA
     Dosage: UNK
     Dates: start: 2015
  2. CIPRO [Suspect]
     Active Substance: CIPROFLOXACIN HYDROCHLORIDE
     Indication: URINARY TRACT INFECTION
  3. LEVOFLOXACIN. [Suspect]
     Active Substance: LEVOFLOXACIN
     Indication: URINARY TRACT INFECTION

REACTIONS (11)
  - Renal pain [None]
  - Arthropathy [None]
  - Malaise [None]
  - Influenza [None]
  - Arthralgia [None]
  - Asthenia [None]
  - Dysstasia [None]
  - Spinal fracture [None]
  - Swelling face [None]
  - Intervertebral disc protrusion [None]
  - Swelling [None]

NARRATIVE: CASE EVENT DATE: 2015
